FAERS Safety Report 20935786 (Version 4)
Quarter: 2022Q3

REPORT INFORMATION
  Report Type: Spontaneous
  Country: CA (occurrence: None)
  Receive Date: 20220609
  Receipt Date: 20220829
  Transmission Date: 20221027
  Serious: Yes (Death, Hospitalization)
  Sender: FDA-Public Use
  Company Number: CA-ROCHE-3110538

PATIENT
  Age: 67 Year
  Sex: Female
  Weight: 73 kg

DRUGS (12)
  1. XELODA [Suspect]
     Active Substance: CAPECITABINE
     Indication: Product used for unknown indication
     Route: 065
  2. DIPHENHYDRAMINE HYDROCHLORIDE [Suspect]
     Active Substance: DIPHENHYDRAMINE HYDROCHLORIDE
     Indication: Premedication
     Route: 065
  3. DOXORUBICIN [Suspect]
     Active Substance: DOXORUBICIN
     Indication: Product used for unknown indication
     Route: 065
  4. SACITUZUMAB GOVITECAN [Suspect]
     Active Substance: SACITUZUMAB GOVITECAN
     Indication: Triple negative breast cancer
     Route: 042
  5. SACITUZUMAB GOVITECAN [Suspect]
     Active Substance: SACITUZUMAB GOVITECAN
     Route: 042
  6. SACITUZUMAB GOVITECAN [Suspect]
     Active Substance: SACITUZUMAB GOVITECAN
     Route: 042
  7. SACITUZUMAB GOVITECAN [Suspect]
     Active Substance: SACITUZUMAB GOVITECAN
     Route: 042
  8. SACITUZUMAB GOVITECAN [Suspect]
     Active Substance: SACITUZUMAB GOVITECAN
     Route: 042
  9. ACETAMINOPHEN [Concomitant]
     Active Substance: ACETAMINOPHEN
  10. DEXAMETHASONE [Concomitant]
     Active Substance: DEXAMETHASONE
  11. TYLENOL [Concomitant]
     Active Substance: ACETAMINOPHEN
  12. AKYNZEO [Concomitant]

REACTIONS (39)
  - Formication [Fatal]
  - Red blood cell count decreased [Fatal]
  - Haemoglobin abnormal [Fatal]
  - Mass [Fatal]
  - Hypotension [Fatal]
  - Tooth fracture [Fatal]
  - Fatigue [Fatal]
  - Weight increased [Fatal]
  - Haemoglobin decreased [Fatal]
  - Dysphagia [Fatal]
  - Somnolence [Fatal]
  - Inappropriate schedule of product administration [Fatal]
  - Speech disorder [Fatal]
  - Pain [Fatal]
  - Eating disorder [Fatal]
  - Weight decreased [Fatal]
  - Stress [Fatal]
  - Dyspnoea [Fatal]
  - Hypersensitivity [Fatal]
  - Rash [Fatal]
  - Abdominal pain upper [Fatal]
  - Diarrhoea [Fatal]
  - Asthenia [Fatal]
  - Energy increased [Fatal]
  - Weight fluctuation [Fatal]
  - Feeling jittery [Fatal]
  - Constipation [Fatal]
  - Heart rate increased [Fatal]
  - Discomfort [Fatal]
  - Abdominal pain [Fatal]
  - Blood pressure systolic abnormal [Fatal]
  - Dizziness [Fatal]
  - Face injury [Fatal]
  - Gait disturbance [Fatal]
  - Lymphoedema [Fatal]
  - Off label use [Fatal]
  - Peripheral swelling [Fatal]
  - Therapeutic response unexpected [Fatal]
  - Death [Fatal]
